FAERS Safety Report 8236783-2 (Version None)
Quarter: 2012Q1

REPORT INFORMATION
  Report Type: 
  Country: None (occurrence: None)
  Receive Date: 20120327
  Receipt Date: 20120320
  Transmission Date: 20120608
  Serious: Yes (Other)
  Sender: FDA-Public Use
  Company Number: US-AMGEN-USASP2012018045

PATIENT
  Age: 13 Year
  Sex: Female

DRUGS (1)
  1. ENBREL [Suspect]
     Indication: RHEUMATOID ARTHRITIS
     Dosage: 50 MG, QWK
     Dates: start: 20110214

REACTIONS (6)
  - PANIC ATTACK [None]
  - INJECTION SITE PAIN [None]
  - ANXIETY [None]
  - FEAR [None]
  - PAIN [None]
  - RHEUMATOID ARTHRITIS [None]
